FAERS Safety Report 24710578 (Version 1)
Quarter: 2024Q4

REPORT INFORMATION
  Report Type: Spontaneous
  Country: TW (occurrence: TW)
  Receive Date: 20241209
  Receipt Date: 20241209
  Transmission Date: 20250115
  Serious: Yes (Other)
  Sender: AMGEN
  Company Number: TW-AMGEN-TWNSP2024238915

PATIENT

DRUGS (1)
  1. EVOLOCUMAB [Suspect]
     Active Substance: EVOLOCUMAB
     Indication: Arteriosclerosis
     Dosage: UNK
     Route: 065

REACTIONS (3)
  - Skin cancer [Unknown]
  - Basal cell carcinoma [Unknown]
  - Squamous cell carcinoma of skin [Unknown]
